FAERS Safety Report 7043340-2 (Version None)
Quarter: 2010Q3

REPORT INFORMATION
  Report Type: 
  Country: None (occurrence: None)
  Receive Date: 20100929
  Receipt Date: 20100624
  Transmission Date: 20110219
  Serious: No
  Sender: FDA-Public Use
  Company Number: US-WYE-H16178210

PATIENT
  Sex: 0

DRUGS (1)
  1. PRISTIQ [Suspect]
     Dosage: 50 MG, FREQUENCY NOT SPECIFIED

REACTIONS (1)
  - ALOPECIA [None]
